FAERS Safety Report 11043879 (Version 1)
Quarter: 2015Q2

REPORT INFORMATION
  Report Type: Spontaneous
  Country: CA (occurrence: CA)
  Receive Date: 20150417
  Receipt Date: 20150417
  Transmission Date: 20150821
  Serious: Yes (Other)
  Sender: FDA-Public Use
  Company Number: CA-SA-2015SA048391

PATIENT
  Age: 59 Year
  Sex: Female

DRUGS (10)
  1. VITAMIN B12 [Concomitant]
     Active Substance: CYANOCOBALAMIN
  2. GABAPENTIN. [Concomitant]
     Active Substance: GABAPENTIN
     Indication: PAIN
  3. TYVERB [Suspect]
     Active Substance: LAPATINIB
     Route: 065
     Dates: start: 2003, end: 20140526
  4. TAXOTERE [Suspect]
     Active Substance: DOCETAXEL
     Route: 065
     Dates: start: 2008
  5. XELODA [Suspect]
     Active Substance: CAPECITABINE
     Route: 065
     Dates: start: 200306, end: 20140526
  6. DOMPERIDONE [Concomitant]
     Active Substance: DOMPERIDONE
  7. LORAZEPAM. [Concomitant]
     Active Substance: LORAZEPAM
  8. PANTOLOC [Concomitant]
     Active Substance: PANTOPRAZOLE SODIUM
  9. HERCEPTIN [Suspect]
     Active Substance: TRASTUZUMAB
     Indication: BREAST CANCER
     Route: 065
     Dates: start: 20130331, end: 20130613
  10. VINORELBINE [Suspect]
     Active Substance: VINORELBINE\VINORELBINE TARTRATE
     Indication: BREAST CANCER
     Route: 065
     Dates: start: 20130331, end: 20130613

REACTIONS (2)
  - Peripheral swelling [Unknown]
  - Breast cancer metastatic [Not Recovered/Not Resolved]

NARRATIVE: CASE EVENT DATE: 2014
